FAERS Safety Report 18723658 (Version 1)
Quarter: 2021Q1

REPORT INFORMATION
  Report Type: Spontaneous
  Country: US (occurrence: US)
  Receive Date: 20210107
  Receipt Date: 20210107
  Transmission Date: 20210419
  Serious: Yes (Hospitalization)
  Sender: FDA-Public Use
  Company Number: None

PATIENT
  Age: 66 Year
  Sex: Male
  Weight: 110 kg

DRUGS (1)
  1. TAMSULOSIN (TAMSULOSIN HCL 0.4MG CAP) [Suspect]
     Active Substance: TAMSULOSIN
     Route: 048
     Dates: start: 20201103, end: 20201217

REACTIONS (4)
  - Orthostatic hypotension [None]
  - Headache [None]
  - Acute kidney injury [None]
  - Dizziness [None]

NARRATIVE: CASE EVENT DATE: 20201217
